FAERS Safety Report 5465069-4 (Version None)
Quarter: 2007Q3

REPORT INFORMATION
  Report Type: 
  Country: None (occurrence: None)
  Receive Date: 20070820
  Receipt Date: 20070511
  Transmission Date: 20080115
  Serious: No
  Sender: FDA-Public Use
  Company Number: TPA2007A01058

PATIENT
  Age: 51 Year
  Sex: Female
  Weight: 54.8852 kg

DRUGS (3)
  1. ROZEREM [Suspect]
     Indication: INITIAL INSOMNIA
     Dosage: 8  MG, HS, PER ORAL
     Route: 048
     Dates: start: 20070321, end: 20070331
  2. ATENOLOL [Concomitant]
  3. NORVASC [Concomitant]

REACTIONS (1)
  - DRUG INEFFECTIVE [None]
